FAERS Safety Report 4860912-1 (Version None)
Quarter: 2005Q4

REPORT INFORMATION
  Report Type: 
  Country: None (occurrence: None)
  Receive Date: 20051216
  Receipt Date: 20051205
  Transmission Date: 20060501
  Serious: Yes (Other)
  Sender: FDA-Public Use
  Company Number: 2005161255

PATIENT
  Age: 90 Year
  Sex: Female

DRUGS (6)
  1. LYRICA [Suspect]
     Indication: MUSCULOSKELETAL PAIN
     Dosage: 75 MG (75 MG, 1 IN 1 D), ORAL
     Route: 048
     Dates: start: 20051122, end: 20051122
  2. CODARONE (AMIODARONE HYDROCHLORIDE) [Concomitant]
  3. TRIVASTAL (PIRIBEDIL) [Concomitant]
  4. ALPRAZOLAM [Concomitant]
  5. OMEPRAZOLE [Concomitant]
  6. CALCITONIN, SALMON (CALCITONIN, SALMON) [Concomitant]

REACTIONS (2)
  - DYSPNOEA [None]
  - RALES [None]
